APPROVED DRUG PRODUCT: SYNTOCINON
Active Ingredient: OXYTOCIN
Strength: 40USP UNITS/ML
Dosage Form/Route: SOLUTION;NASAL
Application: N012285 | Product #001
Applicant: RETROPHIN INC
Approved: Approved Prior to Jan 1, 1982 | RLD: No | RS: No | Type: DISCN